FAERS Safety Report 4417497-3 (Version None)
Quarter: 2004Q3

REPORT INFORMATION
  Report Type: 
  Country: None (occurrence: None)
  Receive Date: 20040804
  Receipt Date: 20040720
  Transmission Date: 20050211
  Serious: Yes (Death)
  Sender: FDA-Public Use
  Company Number: 2004S1002164

PATIENT
  Age: 62 Year
  Sex: Female
  Weight: 117.9352 kg

DRUGS (1)
  1. VERAPAMIL [Suspect]

REACTIONS (2)
  - DRUG LEVEL INCREASED [None]
  - MEDICATION ERROR [None]
